FAERS Safety Report 12184863 (Version 1)
Quarter: 2016Q1

REPORT INFORMATION
  Report Type: Spontaneous
  Country: US (occurrence: US)
  Receive Date: 20160316
  Receipt Date: 20160316
  Transmission Date: 20160526
  Serious: Yes (Hospitalization)
  Sender: FDA-Public Use
  Company Number: US-WATSON-2016-05489

PATIENT
  Age: 75 Year
  Sex: Male

DRUGS (2)
  1. CLONIDINE. [Suspect]
     Active Substance: CLONIDINE
     Indication: HYPERTENSION
     Dosage: 0.05 MG, Q6H
     Route: 048
     Dates: start: 201601, end: 201601
  2. CLONIDINE. [Suspect]
     Active Substance: CLONIDINE
     Dosage: 0.1 MG, SINGLE
     Route: 048
     Dates: start: 20160128, end: 20160128

REACTIONS (7)
  - Seizure [Recovered/Resolved]
  - Unresponsive to stimuli [Recovered/Resolved]
  - Circulatory collapse [Recovered/Resolved]
  - Blood pressure increased [Recovered/Resolved]
  - Hypertensive encephalopathy [Recovered/Resolved]
  - Hypertensive crisis [Recovered/Resolved]
  - Drug ineffective [Recovered/Resolved]

NARRATIVE: CASE EVENT DATE: 20160128
